FAERS Safety Report 25351759 (Version 1)
Quarter: 2025Q2

REPORT INFORMATION
  Report Type: Spontaneous
  Country: US (occurrence: None)
  Receive Date: 20250522
  Receipt Date: 20250522
  Transmission Date: 20250717
  Serious: Yes (Hospitalization)
  Sender: FDA-CTU
  Company Number: None

PATIENT
  Age: 54 Year
  Sex: Male

DRUGS (3)
  1. INBRIJA [Suspect]
     Active Substance: LEVODOPA
     Indication: Parkinson^s disease
     Dates: start: 20250420, end: 20250420
  2. Carbidopa/Levadopa 25-100 mg Tablets [Concomitant]
  3. I Crexont 87.5-350 mg Capsules [Concomitant]

REACTIONS (3)
  - Heart rate increased [None]
  - Chest pain [None]
  - Therapy interrupted [None]

NARRATIVE: CASE EVENT DATE: 20250420
